FAERS Safety Report 22217837 (Version 1)
Quarter: 2023Q2

REPORT INFORMATION
  Report Type: Spontaneous
  Country: US (occurrence: US)
  Receive Date: 20230417
  Receipt Date: 20230417
  Transmission Date: 20230722
  Serious: No
  Sender: FDA-Public Use
  Company Number: US-SANOFI-01572275

PATIENT
  Sex: Female

DRUGS (1)
  1. DUPIXENT [Suspect]
     Active Substance: DUPILUMAB
     Indication: Eczema
     Dosage: UNK
     Dates: start: 20230316

REACTIONS (6)
  - Stomatitis [Unknown]
  - Glossodynia [Unknown]
  - Mouth swelling [Unknown]
  - Blepharospasm [Unknown]
  - Mouth ulceration [Unknown]
  - Vision blurred [Unknown]
